FAERS Safety Report 7012623-4 (Version None)
Quarter: 2010Q3

REPORT INFORMATION
  Report Type: 
  Country: None (occurrence: None)
  Receive Date: 20100924
  Receipt Date: 20100917
  Transmission Date: 20110219
  Serious: Yes (Other)
  Sender: FDA-Public Use
  Company Number: CHPA2010JP14959

PATIENT
  Age: 36 Year
  Sex: Female

DRUGS (1)
  1. GLYSENNID [Suspect]
     Indication: CONSTIPATION
     Dosage: UNK, UNK
     Route: 048

REACTIONS (1)
  - INFERTILITY [None]
